FAERS Safety Report 18289882 (Version 1)
Quarter: 2020Q3

REPORT INFORMATION
  Report Type: Spontaneous
  Country: US (occurrence: US)
  Receive Date: 20200921
  Receipt Date: 20200921
  Transmission Date: 20201103
  Serious: No
  Sender: FDA-Public Use
  Company Number: US-BRAINTREE LABORATORIES-200039

PATIENT
  Age: 69 Year
  Sex: Female
  Weight: 82.55 kg

DRUGS (1)
  1. SUPREP BOWEL PREP [Suspect]
     Active Substance: MAGNESIUM SULFATE\POTASSIUM SULFATE\SODIUM SULFATE
     Indication: COLONOSCOPY
     Dosage: {2 X 6 OZ.BOTTLE
     Route: 048
     Dates: start: 20200120, end: 20200121

REACTIONS (7)
  - Drug ineffective [None]
  - Underdose [None]
  - Nausea [None]
  - Vomiting [None]
  - Dry mouth [None]
  - Heart rate increased [None]
  - Product preparation error [None]

NARRATIVE: CASE EVENT DATE: 20200120
